FAERS Safety Report 7111797-4 (Version None)
Quarter: 2010Q4

REPORT INFORMATION
  Report Type: 
  Country: None (occurrence: None)
  Receive Date: 20101119
  Receipt Date: 20101110
  Transmission Date: 20110411
  Serious: Yes (Hospitalization)
  Sender: FDA-Public Use
  Company Number: US-BIOGENIDEC-2010BI027452

PATIENT
  Age: 59 Year
  Sex: Female

DRUGS (2)
  1. TYSABRI [Suspect]
     Indication: MULTIPLE SCLEROSIS
     Route: 042
     Dates: start: 20080522
  2. BOTOX [Concomitant]
     Indication: NEUROGENIC BLADDER
     Dates: start: 20080101

REACTIONS (3)
  - CYSTITIS [None]
  - HAEMORRHAGE [None]
  - MULTIPLE SCLEROSIS RELAPSE [None]
